FAERS Safety Report 12414850 (Version 1)
Quarter: 2016Q2

REPORT INFORMATION
  Report Type: Spontaneous
  Country: US (occurrence: US)
  Receive Date: 20160529
  Receipt Date: 20160529
  Transmission Date: 20160815
  Serious: Yes (Hospitalization)
  Sender: FDA-Public Use
  Company Number: US-MYLANLABS-2016M1021843

PATIENT

DRUGS (1)
  1. MYCOPHENOLIC ACID DELAYED-RELEASE TABLETS [Suspect]
     Active Substance: MYCOPHENOLIC ACID
     Indication: PROPHYLAXIS AGAINST TRANSPLANT REJECTION
     Dosage: UNK
     Dates: start: 201410

REACTIONS (7)
  - Blood pressure increased [Unknown]
  - Lethargy [Unknown]
  - Proteinuria [Unknown]
  - Fatigue [Unknown]
  - Blood creatinine increased [Unknown]
  - Haematuria [Unknown]
  - Malaise [Unknown]

NARRATIVE: CASE EVENT DATE: 2014
